FAERS Safety Report 16362362 (Version 2)
Quarter: 2019Q3

REPORT INFORMATION
  Report Type: Spontaneous
  Country: US (occurrence: US)
  Receive Date: 20190528
  Receipt Date: 20190701
  Transmission Date: 20191004
  Serious: No
  Sender: FDA-Public Use
  Company Number: US-PFIZER INC-2019226551

PATIENT
  Age: 43 Year
  Sex: Female

DRUGS (1)
  1. IBRANCE [Suspect]
     Active Substance: PALBOCICLIB
     Indication: BREAST CANCER FEMALE
     Dosage: 125 MG, CYCLIC  (DAILY FOR 21 DAYS THEN REST 7 DAYS)
     Route: 048
     Dates: start: 201904

REACTIONS (3)
  - Eating disorder [Unknown]
  - Extra dose administered [Unknown]
  - Feeling hot [Unknown]

NARRATIVE: CASE EVENT DATE: 2019
